FAERS Safety Report 21464655 (Version 1)
Quarter: 2022Q4

REPORT INFORMATION
  Report Type: Spontaneous
  Country: US (occurrence: US)
  Receive Date: 20221017
  Receipt Date: 20221017
  Transmission Date: 20230112
  Serious: Yes (Other)
  Sender: FDA-Public Use
  Company Number: US-CELLTRION INC.-2022US016637

PATIENT

DRUGS (2)
  1. TRUXIMA [Suspect]
     Active Substance: RITUXIMAB-ABBS
     Indication: Thrombocytopenia
     Dosage: 700 MG ONCE WEEKLY
     Route: 065
     Dates: start: 20221005
  2. TRUXIMA [Suspect]
     Active Substance: RITUXIMAB-ABBS
     Dosage: 700 MG, ONCE WEEKLY
     Route: 065
     Dates: start: 20221012

REACTIONS (2)
  - Thrombocytopenia [Unknown]
  - Off label use [Unknown]
